FAERS Safety Report 10587025 (Version 2)
Quarter: 2015Q1

REPORT INFORMATION
  Report Type: Spontaneous
  Country: US (occurrence: US)
  Receive Date: 20141117
  Receipt Date: 20150106
  Transmission Date: 20150720
  Serious: No
  Sender: FDA-Public Use
  Company Number: US-AMGEN INC.-USASL2014088158

PATIENT
  Age: 64 Year
  Sex: Female

DRUGS (2)
  1. ENBREL [Suspect]
     Active Substance: ETANERCEPT
     Indication: RHEUMATOID ARTHRITIS
     Dosage: 50 MG, QWK
     Route: 065
     Dates: start: 20141026, end: 201411
  2. METHOTREXATE [Concomitant]
     Active Substance: METHOTREXATE
     Dosage: UNK

REACTIONS (10)
  - Nodule [Recovered/Resolved]
  - Pain in extremity [Recovered/Resolved]
  - Vulvovaginal discomfort [Recovered/Resolved]
  - Feeling abnormal [Recovered/Resolved]
  - Mass [Recovered/Resolved]
  - Hypoaesthesia [Not Recovered/Not Resolved]
  - Throat irritation [Not Recovered/Not Resolved]
  - Chest pain [Recovered/Resolved]
  - Chest discomfort [Not Recovered/Not Resolved]
  - Dizziness [Recovered/Resolved]

NARRATIVE: CASE EVENT DATE: 201410
